FAERS Safety Report 5509591-0 (Version None)
Quarter: 2007Q4

REPORT INFORMATION
  Report Type: 
  Country: None (occurrence: None)
  Receive Date: 20071029
  Receipt Date: 20070914
  Transmission Date: 20080405
  Serious: Yes (Other)
  Sender: FDA-Public Use
  Company Number: USEN-772PHC

PATIENT

DRUGS (3)
  1. DURAPREP [Suspect]
     Indication: PREOPERATIVE CARE
     Dosage: 6 ML, TOPICAL, SINGLE APPLICATION
     Route: 061
  2. IOBAN INCISE DRAPE [Concomitant]
  3. MEDIPORT [Concomitant]

REACTIONS (2)
  - SKIN IRRITATION [None]
  - SKIN REACTION [None]
